FAERS Safety Report 7904306-0 (Version None)
Quarter: 2011Q4

REPORT INFORMATION
  Report Type: 
  Country: None (occurrence: None)
  Receive Date: 20111109
  Receipt Date: 20111108
  Transmission Date: 20120403
  Serious: Yes (Other)
  Sender: FDA-Public Use
  Company Number: US-PFIZER INC-2011273994

PATIENT
  Sex: Female

DRUGS (1)
  1. NEURONTIN [Suspect]
     Indication: NERVOUS SYSTEM DISORDER
     Dosage: UNK
     Dates: start: 19970101

REACTIONS (3)
  - VISION BLURRED [None]
  - PAIN [None]
  - SEDATION [None]
